FAERS Safety Report 9177549 (Version 2)
Quarter: 2013Q1

REPORT INFORMATION
  Report Type: Spontaneous
  Country: US (occurrence: US)
  Receive Date: 20121001
  Receipt Date: 20130325
  Transmission Date: 20140127
  Serious: Yes (Hospitalization, Congenital Anomaly, Other)
  Sender: FDA-Public Use
  Company Number: US-RB-004564-08

PATIENT
  Age: 1 Day
  Sex: Female

DRUGS (3)
  1. SUBUTEX [Suspect]
     Route: 064
     Dates: start: 20080605, end: 20080915
  2. SUBUTEX [Suspect]
     Indication: PRODUCT USED FOR UNKNOWN INDICATION
     Route: 063
     Dates: start: 20080915
  3. EFFEXOR XR [Suspect]
     Indication: PRODUCT USED FOR UNKNOWN INDICATION
     Route: 064
     Dates: start: 20080605, end: 20080915

REACTIONS (4)
  - Foetal exposure during pregnancy [Recovered/Resolved]
  - Drug withdrawal syndrome neonatal [Recovered/Resolved]
  - Developmental hip dysplasia [Unknown]
  - Exposure during breast feeding [Not Recovered/Not Resolved]
